FAERS Safety Report 10457831 (Version 1)
Quarter: 2014Q3

REPORT INFORMATION
  Report Type: Spontaneous
  Country: CA (occurrence: CA)
  Receive Date: 20140916
  Receipt Date: 20140916
  Transmission Date: 20150326
  Serious: Yes (Other)
  Sender: FDA-Public Use
  Company Number: CA-GLAXOSMITHKLINE-A1089124A

PATIENT
  Age: 2 Year
  Sex: Male
  Weight: 14 kg

DRUGS (3)
  1. ZOFRAN [Suspect]
     Active Substance: ONDANSETRON HYDROCHLORIDE
     Indication: PRODUCT USED FOR UNKNOWN INDICATION
     Dosage: 3MG SINGLE DOSE
     Route: 060
  2. ACETAMINOPHEN. [Concomitant]
     Active Substance: ACETAMINOPHEN
  3. GRAVOL [Concomitant]
     Active Substance: DIMENHYDRINATE

REACTIONS (4)
  - Extrapyramidal disorder [Recovered/Resolved]
  - Incorrect dose administered [Unknown]
  - Dyskinesia [Recovered/Resolved]
  - Oromandibular dystonia [Recovered/Resolved]
